FAERS Safety Report 13872164 (Version 1)
Quarter: 2017Q3

REPORT INFORMATION
  Report Type: Report from Study
  Country: CA (occurrence: CA)
  Receive Date: 20170816
  Receipt Date: 20170816
  Transmission Date: 20171127
  Serious: Yes (Other)
  Sender: FDA-Public Use
  Company Number: CA-INCYTE CORPORATION-2017IN006714

PATIENT

DRUGS (1)
  1. JAKAVI [Suspect]
     Active Substance: RUXOLITINIB
     Indication: MYELOFIBROSIS
     Dosage: 20 MG, BID
     Route: 048
     Dates: start: 201705

REACTIONS (12)
  - Nephrolithiasis [Unknown]
  - Pallor [Unknown]
  - Increased appetite [Unknown]
  - Insomnia [Unknown]
  - Abdominal pain [Unknown]
  - Dyspnoea [Unknown]
  - Constipation [Unknown]
  - Haemoglobin decreased [Unknown]
  - Somnolence [Unknown]
  - Fall [Unknown]
  - Gait disturbance [Unknown]
  - Pain [Unknown]
